FAERS Safety Report 6696224-3 (Version None)
Quarter: 2010Q2

REPORT INFORMATION
  Report Type: 
  Country: None (occurrence: None)
  Receive Date: 20100426
  Receipt Date: 20100414
  Transmission Date: 20101027
  Serious: Yes (Hospitalization)
  Sender: FDA-Public Use
  Company Number: CH-AMGEN-US374048

PATIENT
  Age: 48 Year
  Sex: Male

DRUGS (4)
  1. ENBREL [Suspect]
     Indication: PSORIATIC ARTHROPATHY
     Route: 058
     Dates: start: 20090101, end: 20090927
  2. ARAVA [Suspect]
     Indication: PSORIATIC ARTHROPATHY
     Dosage: DOSE AND FREQUENCY UNKNOWN
     Route: 048
     Dates: start: 20060802, end: 20090415
  3. ATACAND HCT [Concomitant]
     Indication: ESSENTIAL HYPERTENSION
     Dosage: 8+12.5MG PER DAY
     Route: 048
  4. IBUPROFEN [Concomitant]
     Dosage: GIVEN INTERMITTENTLY
     Route: 065
     Dates: start: 20060101

REACTIONS (8)
  - COLITIS [None]
  - HEADACHE [None]
  - HEPATIC ENZYME ABNORMAL [None]
  - MENINGISM [None]
  - MENINGITIS ASEPTIC [None]
  - NAUSEA [None]
  - UPPER RESPIRATORY TRACT INFECTION [None]
  - VOMITING [None]
